FAERS Safety Report 4535684-0 (Version None)
Quarter: 2004Q4

REPORT INFORMATION
  Report Type: 
  Country: None (occurrence: None)
  Receive Date: 20041223
  Receipt Date: 20031117
  Transmission Date: 20050328
  Serious: No
  Sender: FDA-Public Use
  Company Number: US-GLAXOSMITHKLINE-A0440060A

PATIENT
  Sex: Female

DRUGS (3)
  1. FLONASE [Suspect]
     Indication: DRUG USE FOR UNKNOWN INDICATION
     Route: 045
  2. ISOVUE-300 [Suspect]
     Indication: ILL-DEFINED DISORDER
  3. BARIUM [Suspect]
     Indication: ILL-DEFINED DISORDER

REACTIONS (4)
  - DRUG INEFFECTIVE [None]
  - DRUG INTERACTION [None]
  - MALAISE [None]
  - PHARMACEUTICAL PRODUCT COMPLAINT [None]
